FAERS Safety Report 13876936 (Version 1)
Quarter: 2017Q3

REPORT INFORMATION
  Report Type: Spontaneous
  Country: CH (occurrence: CH)
  Receive Date: 20170817
  Receipt Date: 20170817
  Transmission Date: 20171127
  Serious: Yes (Hospitalization)
  Sender: FDA-Public Use
  Company Number: CH-TEVA-795661ISR

PATIENT
  Age: 46 Year
  Sex: Male
  Weight: 74.4 kg

DRUGS (8)
  1. VITAMIN D3 [Concomitant]
     Active Substance: CHOLECALCIFEROL
     Dosage: 3000 IU (INTERNATIONAL UNIT) DAILY;
  2. LEVETIRACETAM SANDOZ [Suspect]
     Active Substance: LEVETIRACETAM
     Indication: EPILEPSY
     Dosage: 2000 MILLIGRAM DAILY;
  3. SPRYCEL [Suspect]
     Active Substance: DASATINIB
     Indication: LEUKAEMIA
     Dosage: 70 MILLIGRAM DAILY;
     Route: 048
     Dates: end: 20170405
  4. NOXAFIL [Suspect]
     Active Substance: POSACONAZOLE
     Dates: end: 20170407
  5. LAMOTRIGIN ACTAVIS [Suspect]
     Active Substance: LAMOTRIGINE
     Indication: EPILEPSY
     Dosage: 400 MILLIGRAM DAILY;
  6. DAFALGAN 1 G BRAUSETABLETTEN [Concomitant]
     Dosage: 4000 MILLIGRAM DAILY;
  7. NOVALGIN [Concomitant]
     Active Substance: METAMIZOLE SODIUM
  8. BACTRIM [Suspect]
     Active Substance: SULFAMETHOXAZOLE\TRIMETHOPRIM
     Dates: end: 20170407

REACTIONS (3)
  - Pneumonia [Recovered/Resolved]
  - Electrocardiogram QT prolonged [Recovered/Resolved]
  - Disorientation [Unknown]

NARRATIVE: CASE EVENT DATE: 20170329
